FAERS Safety Report 7561124-3 (Version None)
Quarter: 2011Q2

REPORT INFORMATION
  Report Type: 
  Country: None (occurrence: None)
  Receive Date: 20110621
  Receipt Date: 20110610
  Transmission Date: 20111010
  Serious: Yes (Other)
  Sender: FDA-Public Use
  Company Number: JP-ELI_LILLY_AND_COMPANY-JP201106003146

PATIENT
  Age: 43 Year
  Sex: Male

DRUGS (6)
  1. BYETTA [Suspect]
     Indication: DIABETES MELLITUS
     Dosage: 5 UG, BID
     Route: 058
     Dates: start: 20110516, end: 20110604
  2. BIGUANIDE [Concomitant]
     Dosage: UNK
     Dates: start: 20080301
  3. LEVEMIR [Concomitant]
     Dosage: UNK
     Dates: start: 20091201
  4. METFORMIN HCL [Concomitant]
     Indication: DIABETES MELLITUS
     Dosage: 1000 G, QD
     Route: 048
     Dates: start: 20110426, end: 20110604
  5. AMARYL [Concomitant]
     Indication: DIABETES MELLITUS
     Dosage: 0.5 G, QD
     Route: 048
     Dates: start: 20080314
  6. VICTOZA [Concomitant]
     Dosage: UNK
     Dates: start: 20100601

REACTIONS (3)
  - LIVER DISORDER [None]
  - VOMITING [None]
  - ABDOMINAL DISTENSION [None]
